FAERS Safety Report 10074090 (Version 1)
Quarter: 2014Q2

REPORT INFORMATION
  Report Type: Spontaneous
  Country: IT (occurrence: IT)
  Receive Date: 20140413
  Receipt Date: 20140413
  Transmission Date: 20141212
  Serious: Yes (Other)
  Sender: FDA-Public Use
  Company Number: IT-MYLANLABS-2014S1007901

PATIENT
  Age: 32 Year
  Sex: Female
  Weight: 50 kg

DRUGS (8)
  1. TRAMADOL [Suspect]
     Indication: DRUG ABUSE
     Dosage: 30 ML OF A TRAMADOL 100 MG/ML ORAL SOLUTION PER WEEK FOR 2 YEARS, 300-550MG/DAY IN 8D BEFORE DETOX
     Route: 048
  2. TRAMADOL [Suspect]
     Indication: ABDOMINAL PAIN
     Dosage: 30 ML OF A TRAMADOL 100 MG/ML ORAL SOLUTION PER WEEK FOR 2 YEARS, 300-550MG/DAY IN 8D BEFORE DETOX
     Route: 048
  3. TRAMADOL [Suspect]
     Indication: DRUG ABUSE
     Route: 030
  4. TRAMADOL [Suspect]
     Indication: ABDOMINAL PAIN
     Route: 030
  5. TRAMADOL [Suspect]
     Indication: DRUG ABUSE
     Route: 048
  6. TRAMADOL [Suspect]
     Indication: ABDOMINAL PAIN
     Route: 048
  7. CITALOPRAM [Interacting]
     Route: 065
  8. DIAZEPAM [Concomitant]
     Dosage: 2MG EACH TIME SHE TOOK TRAMADOL, UP TO 8MG DURING DETOX
     Route: 048

REACTIONS (12)
  - Drug abuse [Recovering/Resolving]
  - Drug dependence [Recovering/Resolving]
  - Drug withdrawal syndrome [Recovering/Resolving]
  - Urinary retention [Unknown]
  - Drug interaction [Unknown]
  - Fatigue [Unknown]
  - Decreased appetite [Unknown]
  - Insomnia [Unknown]
  - Tachycardia [Not Recovered/Not Resolved]
  - Anxiety [Not Recovered/Not Resolved]
  - Agitation [Not Recovered/Not Resolved]
  - Constipation [Unknown]
